FAERS Safety Report 5750123-X (Version None)
Quarter: 2008Q2

REPORT INFORMATION
  Report Type: 
  Country: None (occurrence: None)
  Receive Date: 20080522
  Receipt Date: 20080522
  Transmission Date: 20081010
  Serious: No
  Sender: FDA-Public Use
  Company Number: None

PATIENT
  Age: 32 Year
  Sex: Female
  Weight: 63.5036 kg

DRUGS (2)
  1. ZICAM [Suspect]
     Dosage: 2 SWABS WITHIN 5 HOURS NASAL
     Route: 045
     Dates: start: 20080517, end: 20080517
  2. ZICAM [Suspect]
     Dosage: 2 SWABS WITHIN 5 HOURS NASAL
     Route: 045
     Dates: start: 20080517, end: 20080517

REACTIONS (2)
  - AGEUSIA [None]
  - ANOSMIA [None]
